FAERS Safety Report 4616311-0 (Version None)
Quarter: 2005Q1

REPORT INFORMATION
  Report Type: 
  Country: None (occurrence: None)
  Receive Date: 20050321
  Receipt Date: 20050307
  Transmission Date: 20050727
  Serious: Yes (Other)
  Sender: FDA-Public Use
  Company Number: SUS1-2005-00167

PATIENT
  Age: 14 Year
  Sex: Female
  Weight: 51.2 kg

DRUGS (5)
  1. ADDERALL XR 10 [Suspect]
     Indication: ATTENTION DEFICIT/HYPERACTIVITY DISORDER
     Dosage: SEE IMAGE, ORAL
     Route: 048
     Dates: start: 20031101
  2. PROAMATINE [Concomitant]
  3. PREVACID [Concomitant]
  4. FLORINEF [Concomitant]
  5. BACTRIM [Concomitant]

REACTIONS (12)
  - ANOREXIA [None]
  - AORTIC VALVE INCOMPETENCE [None]
  - AUTONOMIC NERVOUS SYSTEM IMBALANCE [None]
  - COUGH [None]
  - DIZZINESS [None]
  - HEART RATE DECREASED [None]
  - LOSS OF CONSCIOUSNESS [None]
  - ORTHOSTATIC HYPOTENSION [None]
  - PARAESTHESIA [None]
  - SYNCOPE VASOVAGAL [None]
  - WEIGHT DECREASED [None]
  - WHEEZING [None]
